FAERS Safety Report 8999691 (Version 1)
Quarter: 2013Q1

REPORT INFORMATION
  Report Type: Spontaneous
  Country: US (occurrence: US)
  Receive Date: 20130102
  Receipt Date: 20130102
  Transmission Date: 20140127
  Serious: Yes (Hospitalization)
  Sender: FDA-Public Use
  Company Number: US-AMGEN-USASP2012084073

PATIENT
  Sex: Female

DRUGS (2)
  1. ENBREL [Suspect]
     Indication: PSORIATIC ARTHROPATHY
     Dosage: UNK
     Dates: start: 200401, end: 200601
  2. HUMIRA [Concomitant]
     Dosage: UNK

REACTIONS (7)
  - Blood calcium decreased [Not Recovered/Not Resolved]
  - Muscle spasms [Not Recovered/Not Resolved]
  - Muscle twitching [Not Recovered/Not Resolved]
  - Goitre [Recovered/Resolved]
  - Paraesthesia [Not Recovered/Not Resolved]
  - Local swelling [Recovered/Resolved]
  - Rash pruritic [Recovered/Resolved]
